FAERS Safety Report 11091581 (Version 1)
Quarter: 2015Q2

REPORT INFORMATION
  Report Type: Spontaneous
  Country: US (occurrence: None)
  Receive Date: 20150504
  Receipt Date: 20150504
  Transmission Date: 20150821
  Serious: Yes (Disabling, Other)
  Sender: FDA-Public Use
  Company Number: None

PATIENT
  Age: 68 Year
  Sex: Male
  Weight: 87.54 kg

DRUGS (29)
  1. OMEPRAZOLE. [Concomitant]
     Active Substance: OMEPRAZOLE
  2. CARBOXYMETHYCELLULOSE [Concomitant]
  3. ATORVASTATIN CALCIUM. [Concomitant]
     Active Substance: ATORVASTATIN CALCIUM
  4. FISH OIL [Concomitant]
     Active Substance: FISH OIL
  5. LORATADINE. [Concomitant]
     Active Substance: LORATADINE
  6. ACETAMINOPHEN. [Concomitant]
     Active Substance: ACETAMINOPHEN
  7. CAPSAICIN. [Concomitant]
     Active Substance: CAPSAICIN
  8. MULTIVITAMINS MINERALS [Concomitant]
  9. TAMSULOSIN [Concomitant]
     Active Substance: TAMSULOSIN
  10. LEVOTHYROXINE NA (SYNTHROID) [Concomitant]
  11. PSYLLIUM [Concomitant]
     Active Substance: PLANTAGO SEED
  12. SERTRALINE [Concomitant]
     Active Substance: SERTRALINE HYDROCHLORIDE
  13. RISPERIDONE. [Concomitant]
     Active Substance: RISPERIDONE
  14. SODIUM CHLORIDE. [Concomitant]
     Active Substance: SODIUM CHLORIDE
  15. FOLIC ACID. [Concomitant]
     Active Substance: FOLIC ACID
  16. CALCIUM CARB. [Concomitant]
  17. FLUNISOLIDE. [Concomitant]
     Active Substance: FLUNISOLIDE
  18. RIVAROXABAN [Suspect]
     Active Substance: RIVAROXABAN
     Indication: TRANSIENT ISCHAEMIC ATTACK
     Dosage: BY MOUTH WITH EVENING MEAL
     Dates: start: 20150104, end: 20150320
  19. CYANOCOBALAMIN. [Concomitant]
     Active Substance: CYANOCOBALAMIN
  20. MAGNESIUM OXIDE. [Concomitant]
     Active Substance: MAGNESIUM OXIDE
  21. GABAPENTIN. [Concomitant]
     Active Substance: GABAPENTIN
  22. NYTROGLYCERIN [Concomitant]
  23. CHOLECALCIFEROL [Concomitant]
     Active Substance: CHOLECALCIFEROL
  24. FLUOCINONIDE. [Concomitant]
     Active Substance: FLUOCINONIDE
  25. LACTASE [Concomitant]
     Active Substance: LACTASE
  26. LACTUBACILLUS [Concomitant]
  27. RIVAROXABAN [Suspect]
     Active Substance: RIVAROXABAN
     Indication: ATRIAL FIBRILLATION
     Dosage: BY MOUTH WITH EVENING MEAL
     Dates: start: 20150104, end: 20150320
  28. ELIQUIS [Concomitant]
     Active Substance: APIXABAN
  29. TEMAZEPAM. [Concomitant]
     Active Substance: TEMAZEPAM

REACTIONS (2)
  - No therapeutic response [None]
  - Headache [None]

NARRATIVE: CASE EVENT DATE: 201501
